FAERS Safety Report 21539582 (Version 2)
Quarter: 2023Q2

REPORT INFORMATION
  Report Type: Report from Study
  Country: US (occurrence: US)
  Receive Date: 20221102
  Receipt Date: 20230608
  Transmission Date: 20230722
  Serious: No
  Sender: FDA-Public Use
  Company Number: US-ABBVIE-4184220

PATIENT
  Sex: Male

DRUGS (4)
  1. VENCLEXTA [Suspect]
     Active Substance: VENETOCLAX
     Indication: Richter^s syndrome
     Dosage: FORM STRENGTH: 50 MILLIGRAM, DAY 3, 5 TABLETS , OF RAMP UP AS DIRECTED. TAKEN WITH FOOD AND WATER
     Route: 048
  2. VENCLEXTA [Suspect]
     Active Substance: VENETOCLAX
     Indication: Richter^s syndrome
     Dosage: DAY 1, TAKEN WITH FOOD AND WATER
     Route: 048
  3. VENCLEXTA [Suspect]
     Active Substance: VENETOCLAX
     Indication: Richter^s syndrome
     Dosage: DAY 2, 2 TABLETS , TAKEN WITH FOOD AND WATER
     Route: 048
  4. CRESEMBA [Interacting]
     Active Substance: ISAVUCONAZONIUM SULFATE
     Indication: Product used for unknown indication
     Route: 065

REACTIONS (2)
  - Off label use [Unknown]
  - Drug interaction [Unknown]
